FAERS Safety Report 10897160 (Version 1)
Quarter: 2015Q1

REPORT INFORMATION
  Report Type: Spontaneous
  Country: US (occurrence: None)
  Receive Date: 20150302
  Receipt Date: 20150302
  Transmission Date: 20150721
  Serious: Yes (Life-Threatening)
  Sender: FDA-Public Use
  Company Number: None

PATIENT
  Age: 49 Year
  Sex: Female
  Weight: 56.7 kg

DRUGS (1)
  1. VENLAFAXINE [Suspect]
     Active Substance: VENLAFAXINE HYDROCHLORIDE
     Indication: DEPRESSION
     Dosage: 1 CAPSULE DAILY  ONCE DAILY  TAKEN BY MOUTH
     Route: 048
     Dates: start: 20140115, end: 20150224

REACTIONS (10)
  - Therapy cessation [None]
  - Fear [None]
  - Pain [None]
  - Influenza [None]
  - Confusional state [None]
  - Cognitive disorder [None]
  - Suicidal ideation [None]
  - Withdrawal syndrome [None]
  - Unable to afford prescribed medication [None]
  - Migraine [None]

NARRATIVE: CASE EVENT DATE: 20150227
